FAERS Safety Report 7525911-X (Version None)
Quarter: 2011Q2

REPORT INFORMATION
  Report Type: 
  Country: None (occurrence: None)
  Receive Date: 20110606
  Receipt Date: 20110531
  Transmission Date: 20111010
  Serious: Yes (Hospitalization)
  Sender: FDA-Public Use
  Company Number: B0723003A

PATIENT
  Sex: Male

DRUGS (19)
  1. EZETIMIBE [Concomitant]
     Route: 065
  2. REPAGLINIDE [Concomitant]
     Dosage: 2MG THREE TIMES PER DAY
     Route: 065
  3. BECOTIDE [Concomitant]
     Dosage: 250MCG TWICE PER DAY
     Route: 065
  4. ARIXTRA [Suspect]
     Dosage: 2.5MG PER DAY
     Route: 058
     Dates: start: 20110415, end: 20110416
  5. PLAVIX [Suspect]
     Dosage: 75MG PER DAY
     Route: 048
     Dates: start: 20110415, end: 20110416
  6. AUGMENTIN [Suspect]
     Indication: BRONCHITIS
     Route: 048
     Dates: start: 20110331, end: 20110408
  7. SULFARLEM [Concomitant]
     Route: 065
  8. BISOPROLOL FUMARATE [Concomitant]
     Route: 065
  9. VASTAREL [Concomitant]
     Dosage: 35MG TWICE PER DAY
     Route: 065
  10. VENTOLIN [Concomitant]
     Dosage: 2.5MG TWICE PER DAY
     Route: 055
  11. RAMIPRIL [Suspect]
     Dosage: 1.25MG PER DAY
     Route: 048
     Dates: start: 20110415, end: 20110507
  12. AVODART [Concomitant]
     Dosage: .5MG PER DAY
     Route: 065
  13. ACETAMINOPHEN [Concomitant]
     Dosage: 1G THREE TIMES PER DAY
     Route: 065
  14. SIMVASTATIN [Suspect]
     Dosage: 20MG PER DAY
     Route: 048
     Dates: start: 20110416, end: 20110506
  15. PREDNISOLONE [Concomitant]
     Indication: BRONCHITIS
     Route: 048
     Dates: start: 20110408, end: 20110412
  16. ASPIRIN [Concomitant]
     Route: 065
  17. LEXOMIL [Concomitant]
     Route: 065
  18. CLARITHROMYCIN [Concomitant]
     Indication: BRONCHITIS
     Route: 048
     Dates: start: 20110408
  19. PERMIXON [Concomitant]
     Route: 065

REACTIONS (10)
  - PLEURISY [None]
  - PRURITUS [None]
  - PLEURAL EFFUSION [None]
  - PYREXIA [None]
  - ASTHENIA [None]
  - DRUG RASH WITH EOSINOPHILIA AND SYSTEMIC SYMPTOMS [None]
  - ALANINE AMINOTRANSFERASE INCREASED [None]
  - MYOPERICARDITIS [None]
  - EOSINOPHILIA [None]
  - DRUG ERUPTION [None]
